FAERS Safety Report 4893855-8 (Version None)
Quarter: 2006Q1

REPORT INFORMATION
  Report Type: 
  Country: None (occurrence: None)
  Receive Date: 20060127
  Receipt Date: 20041214
  Transmission Date: 20060701
  Serious: Yes (Hospitalization)
  Sender: FDA-Public Use
  Company Number: US-GLAXOSMITHKLINE-A0537526A

PATIENT
  Age: 16 Year
  Sex: Female

DRUGS (4)
  1. WELLBUTRIN [Suspect]
     Indication: BIPOLAR DISORDER
  2. DEPAKOTE [Concomitant]
  3. SEROQUEL [Concomitant]
  4. TOPAMAX [Concomitant]

REACTIONS (3)
  - CONDITION AGGRAVATED [None]
  - MANIA [None]
  - MENTAL DISORDER [None]
